FAERS Safety Report 4378318-0 (Version None)
Quarter: 2004Q2

REPORT INFORMATION
  Report Type: 
  Country: None (occurrence: None)
  Receive Date: 20040609
  Receipt Date: 20040525
  Transmission Date: 20050107
  Serious: Yes (Hospitalization)
  Sender: FDA-Public Use
  Company Number: USA040568536

PATIENT
  Age: 78 Year
  Sex: Female

DRUGS (2)
  1. FORTEO [Suspect]
     Indication: OSTEOPOROSIS
     Dates: start: 20031001, end: 20040101
  2. ARAVA [Concomitant]

REACTIONS (6)
  - ABDOMINAL PAIN [None]
  - BLOOD URINE [None]
  - CHOLELITHIASIS [None]
  - CYSTITIS [None]
  - NAUSEA [None]
  - VOMITING [None]
